FAERS Safety Report 13603184 (Version 3)
Quarter: 2017Q3

REPORT INFORMATION
  Report Type: Spontaneous
  Country: CH (occurrence: CH)
  Receive Date: 20170601
  Receipt Date: 20170718
  Transmission Date: 20171127
  Serious: Yes (Other)
  Sender: FDA-Public Use
  Company Number: CH-LPDUSPRD-20170676

PATIENT
  Sex: Female
  Weight: 58 kg

DRUGS (3)
  1. VISANNE [Concomitant]
     Active Substance: DIENOGEST
     Dosage: UNKNOWN
     Route: 048
     Dates: start: 201612
  2. FERINJECT [Suspect]
     Active Substance: FERRIC CARBOXYMALTOSE
     Dosage: 1000 MG
     Route: 041
     Dates: start: 201702, end: 201702
  3. IRON [Concomitant]
     Active Substance: IRON
     Dosage: UNKNOWN
     Route: 065

REACTIONS (2)
  - Respiratory distress [Unknown]
  - Urticaria [Unknown]

NARRATIVE: CASE EVENT DATE: 201702
